FAERS Safety Report 5649279-9 (Version None)
Quarter: 2008Q1

REPORT INFORMATION
  Report Type: 
  Country: None (occurrence: None)
  Receive Date: 20080304
  Receipt Date: 20071202
  Transmission Date: 20080703
  Serious: No
  Sender: FDA-Public Use
  Company Number: US-BAYER-200810041NA

PATIENT
  Age: 25 Year
  Sex: Male
  Weight: 59 kg

DRUGS (3)
  1. ULTRAVIST (PHARMACY BULK) [Suspect]
     Indication: COMPUTERISED TOMOGRAM
     Dosage: TOTAL DAILY DOSE: 100 ML  UNIT DOSE: 100 ML
     Route: 042
     Dates: start: 20071018, end: 20071018
  2. MORPHINE [Concomitant]
  3. PHENERGAN NOS [Concomitant]

REACTIONS (1)
  - PRURITUS [None]
